FAERS Safety Report 5513440-4 (Version None)
Quarter: 2007Q4

REPORT INFORMATION
  Report Type: 
  Country: None (occurrence: None)
  Receive Date: 20071112
  Receipt Date: 20071031
  Transmission Date: 20080405
  Serious: Yes (Hospitalization)
  Sender: FDA-Public Use
  Company Number: SE-PFIZER INC-2007091686

PATIENT
  Sex: Female

DRUGS (5)
  1. DALACIN [Suspect]
     Indication: INJURY
     Dosage: TEXT:EVERY DAY TDD:900MG
     Route: 048
     Dates: start: 20070501, end: 20070527
  2. ERGENYL - SLOW RELEASE [Concomitant]
     Route: 048
  3. ACETAMINOPHEN [Concomitant]
     Route: 048
  4. TROMBYL [Concomitant]
     Route: 048
  5. TIPAROL [Concomitant]
     Route: 048

REACTIONS (1)
  - MOUTH ULCERATION [None]
